FAERS Safety Report 5966391-5 (Version None)
Quarter: 2008Q4

REPORT INFORMATION
  Report Type: 
  Country: None (occurrence: None)
  Receive Date: 20081119
  Receipt Date: 20080820
  Transmission Date: 20090506
  Serious: No
  Sender: FDA-Public Use
  Company Number: WAES 0808USA04059

PATIENT
  Age: 79 Year
  Sex: Female

DRUGS (5)
  1. JANUVIA [Suspect]
     Indication: DIABETES MELLITUS
     Dosage: 100 MG DAILY PO
     Route: 048
     Dates: start: 20080814, end: 20080815
  2. COREG [Concomitant]
  3. LEVOXYL [Concomitant]
  4. PROTONIX [Concomitant]
  5. STARLIX [Concomitant]

REACTIONS (1)
  - OEDEMA PERIPHERAL [None]
